FAERS Safety Report 8009933-0 (Version None)
Quarter: 2011Q4

REPORT INFORMATION
  Report Type: 
  Country: None (occurrence: None)
  Receive Date: 20111228
  Receipt Date: 20111215
  Transmission Date: 20120403
  Serious: Yes (Other)
  Sender: FDA-Public Use
  Company Number: PHHY2011NL109938

PATIENT
  Age: 21 Year
  Sex: Female
  Weight: 80 kg

DRUGS (2)
  1. SANDOSTATIN LAR [Suspect]
     Dosage: 30 MG, ONCE PER 4 WEEKS
     Dates: start: 20111101
  2. SANDOSTATIN LAR [Suspect]
     Indication: MACULAR OEDEMA
     Dosage: 30 MG, ONCE PER 4 WEEKS
     Dates: start: 20110428, end: 20110601

REACTIONS (1)
  - MENSTRUAL DISORDER [None]
